FAERS Safety Report 24791992 (Version 1)
Quarter: 2024Q4

REPORT INFORMATION
  Report Type: Report from Study
  Country: IT (occurrence: IT)
  Receive Date: 20241231
  Receipt Date: 20241231
  Transmission Date: 20250115
  Serious: Yes (Hospitalization, Other)
  Sender: ABBVIE
  Company Number: IT-ABBVIE-6067981

PATIENT
  Age: 73 Year

DRUGS (1)
  1. CARBIDOPA\LEVODOPA [Suspect]
     Active Substance: CARBIDOPA\LEVODOPA
     Indication: Parkinson^s disease
     Dosage: DAILY DOSE: 2.534,4 MG/DAY; CRL: 0,34ML/H CRB: 0,49ML/H CRH: 0,51ML/H ED: 0ML LD: 0ML
     Route: 058
     Dates: start: 20240730

REACTIONS (1)
  - Gastrointestinal neoplasm [Not Recovered/Not Resolved]

NARRATIVE: CASE EVENT DATE: 20241201
